FAERS Safety Report 8532495-6 (Version None)
Quarter: 2012Q3

REPORT INFORMATION
  Report Type: 
  Country: None (occurrence: None)
  Receive Date: 20120716
  Receipt Date: 20120716
  Transmission Date: 20120928
  Serious: Yes (Other)
  Sender: FDA-Public Use
  Company Number: None

PATIENT
  Age: 31 Year
  Sex: Female
  Weight: 54.4316 kg

DRUGS (1)
  1. CHANTIX [Suspect]
     Dosage: 2 DAY PO
     Route: 048
     Dates: start: 20120301, end: 20120501

REACTIONS (3)
  - DEPRESSION [None]
  - ANXIETY [None]
  - DISSOCIATION [None]
